FAERS Safety Report 7554006-4 (Version None)
Quarter: 2011Q2

REPORT INFORMATION
  Report Type: 
  Country: None (occurrence: None)
  Receive Date: 20110617
  Receipt Date: 20110609
  Transmission Date: 20111010
  Serious: Yes (Other)
  Sender: FDA-Public Use
  Company Number: CO-AMGEN-COLSP2010006886

PATIENT
  Age: 49 Year
  Sex: Male

DRUGS (9)
  1. ENALAPRIL MALEATE [Concomitant]
     Indication: HYPERTENSION
     Dosage: 40 MG, 1X/DAY
     Dates: start: 20070101
  2. ARAVA [Concomitant]
     Indication: RHEUMATOID ARTHRITIS
     Dosage: 20 MG, 1X/DAY
     Dates: start: 20100701
  3. PREDNISOLONE [Concomitant]
     Indication: IMMUNOMODULATORY THERAPY
     Dosage: 5 MG, 1X/DAY
     Dates: start: 20030101
  4. PREDNISOLONE [Concomitant]
     Indication: RHEUMATOID ARTHRITIS
     Dosage: 10 MG, 1X/DAY
     Dates: start: 20071010
  5. OMEPRAZOLE [Concomitant]
     Indication: LIVER DISORDER
  6. ENBREL [Suspect]
     Indication: RHEUMATOID ARTHRITIS
     Dosage: 50 MG, WEEKLY
     Route: 058
     Dates: start: 20100901
  7. ACETAMINOPHEN [Concomitant]
     Indication: PAIN
     Dosage: 500 MG, AS NEEDED
  8. OMEPRAZOLE [Concomitant]
     Indication: GASTRIC DISORDER
     Dosage: 20 MG, 1X/DAY
  9. SULFASALAZINE [Concomitant]
     Indication: RHEUMATOID ARTHRITIS
     Dosage: 1000 MG, 1X/DAY
     Dates: start: 20090925

REACTIONS (9)
  - OCULAR HYPERAEMIA [None]
  - INJECTION SITE IRRITATION [None]
  - DRY EYE [None]
  - EYE IRRITATION [None]
  - INJECTION SITE INFLAMMATION [None]
  - PYREXIA [None]
  - BRONCHITIS [None]
  - ABNORMAL SENSATION IN EYE [None]
  - INJECTION SITE INDURATION [None]
